FAERS Safety Report 8896751 (Version 1)
Quarter: 2012Q4

REPORT INFORMATION
  Report Type: Spontaneous
  Country: DE (occurrence: None)
  Receive Date: 20121101
  Receipt Date: 20121101
  Transmission Date: 20130627
  Serious: Yes (Other)
  Sender: FDA-Public Use
  Company Number: VAL_00947_2012

PATIENT

DRUGS (3)
  1. METOPROLOL [Suspect]
     Indication: HYPERTENSION
     Dosage: [maternal  dose]
     Route: 064
  2. DIHYDRALAZINE SULFATE [Suspect]
     Indication: HYPERTENSION
     Dosage: [maternal dose]
     Route: 064
  3. NACOM 100 MG/25 MG TABLETTEN [Concomitant]

REACTIONS (2)
  - Maternal drugs affecting foetus [None]
  - Small for dates baby [None]
